FAERS Safety Report 12503771 (Version 1)
Quarter: 2016Q2

REPORT INFORMATION
  Report Type: Spontaneous
  Country: US (occurrence: None)
  Receive Date: 20160627
  Receipt Date: 20160627
  Transmission Date: 20160815
  Serious: Yes (Other)
  Sender: FDA-Public Use
  Company Number: None

PATIENT
  Age: 15 Year
  Sex: Female
  Weight: 44.45 kg

DRUGS (1)
  1. DESOXIMETASONE. [Suspect]
     Active Substance: DESOXIMETASONE
     Indication: SEBORRHOEIC DERMATITIS
     Dosage: 1 THIN FILM TWICE A DAY APPLIED TO A SURFACE, USUALLY THE SKIN
     Route: 061
     Dates: start: 20160610, end: 20160617

REACTIONS (3)
  - Skin exfoliation [None]
  - Alopecia [None]
  - Rash [None]

NARRATIVE: CASE EVENT DATE: 20160610
